FAERS Safety Report 24229302 (Version 8)
Quarter: 2025Q4

REPORT INFORMATION
  Report Type: Report from Study
  Country: EU (occurrence: EU)
  Receive Date: 20240820
  Receipt Date: 20251222
  Transmission Date: 20260117
  Serious: Yes (Hospitalization, Other)
  Sender: NOVARTIS
  Company Number: EU-002147023-NVSC2024FR167629

PATIENT
  Sex: Female
  Weight: 66.2 kg

DRUGS (19)
  1. KISQALI [Suspect]
     Active Substance: RIBOCICLIB SUCCINATE
     Indication: Hormone receptor positive HER2 negative breast cancer
     Dosage: 400 MG, QD
     Route: 048
     Dates: start: 20240705
  2. KISQALI [Suspect]
     Active Substance: RIBOCICLIB SUCCINATE
     Dosage: 400 MG, QD
     Route: 048
     Dates: start: 20240802, end: 20240805
  3. LEVOTHYROXINE [Concomitant]
     Active Substance: LEVOTHYROXINE
     Indication: Product used for unknown indication
     Dosage: 50 UG (BEFORE 05 AUG 2024, IN THE MORNING)
     Route: 065
     Dates: start: 202408
  4. FEMARA [Concomitant]
     Active Substance: LETROZOLE
     Indication: Product used for unknown indication
     Dosage: 2.5 MG, QD (AT DISCHARGE FROM HOSPITAL)
     Route: 065
     Dates: start: 20240614
  5. FASLODEX [Concomitant]
     Active Substance: FULVESTRANT
     Indication: Product used for unknown indication
     Dosage: UNK (24H AFTER DISCONTINUATION OF INNOHEP (TINZAPARIN SODIUM), AROUND 19 OR 20- AUG-2024)
     Route: 030
  6. XGEVA [Concomitant]
     Active Substance: DENOSUMAB
     Indication: Product used for unknown indication
     Dosage: 120 MG (1 INJECTION EVERY 28 DAYS)
     Route: 065
     Dates: start: 20240614
  7. Cholecalcifer eg [Concomitant]
     Indication: Product used for unknown indication
     Dosage: 80000 IU, QW (BEFORE 05-AUG-2024, AT DISCHARGE FROM HOSPITAL)
     Route: 065
  8. Cholecalcifer eg [Concomitant]
     Dosage: 50000 IU, QMO (AT DISCHARGE FROM HOSPITAL)
     Route: 065
  9. NEFOPAM [Concomitant]
     Active Substance: NEFOPAM
     Indication: Product used for unknown indication
     Dosage: 20 MG (4XDAY IN CASE OF PAIN, BEFORE 05 AUG 2024)
     Route: 065
  10. DOLIPRANE [Concomitant]
     Active Substance: ACETAMINOPHEN
     Indication: Product used for unknown indication
     Dosage: 500 MG, TID (BEFORE 05 AUG 2024)
     Route: 065
  11. FENTANYL [Concomitant]
     Active Substance: FENTANYL
     Indication: Product used for unknown indication
     Dosage: 25 UG, Q72H (BEFORE 5 AUG 2024, AT DISCHARGE FROM HOSPITAL)
     Route: 065
  12. FENTANYL [Concomitant]
     Active Substance: FENTANYL
     Dosage: 50 UG, Q72H (AT DISCHARGE FROM HOSPITAL)
     Route: 065
  13. LIDOCAINE [Concomitant]
     Active Substance: LIDOCAINE
     Indication: Product used for unknown indication
     Dosage: 700 MG (IN THE EVENING, BEFORE 05 AUG 2024)
     Route: 065
  14. INNOHEP [Concomitant]
     Active Substance: TINZAPARIN SODIUM
     Indication: Product used for unknown indication
     Dosage: UNK (4500 U, IN THE EVENING, BEFORE 05 AUG 2024, AT DISCHARGE FROM HOSPITAL))
     Route: 065
  15. INNOHEP [Concomitant]
     Active Substance: TINZAPARIN SODIUM
     Dosage: UNK (14000/0.7 ML 10000 IU BEING 5 ML, TO BE SUSPENDED FOR 24H BEFORE THE INTRAMUSCULAR INJECTION, T
     Route: 030
  16. ECONAZOLE [Concomitant]
     Active Substance: ECONAZOLE
     Indication: Product used for unknown indication
     Dosage: UNK (MORNING AND EVENING, BEFORE 05 AUG 2024)
     Route: 065
  17. IBRANCE [Concomitant]
     Active Substance: PALBOCICLIB
     Indication: Product used for unknown indication
     Dosage: 125 MG (DAILY FOR 21 DAYS AND THEN 7 DAYS OF PAUSE, BEFORE 05 AUG 2024)
     Route: 065
  18. AMITRIPTYLINE HYDROCHLORIDE [Concomitant]
     Active Substance: AMITRIPTYLINE HYDROCHLORIDE
     Indication: Product used for unknown indication
     Dosage: 3 DRP (AT BEDTIME, AT DISCHARGE FROM HOSPITAL)
     Route: 065
  19. HYDROCORTISONE [Concomitant]
     Active Substance: HYDROCORTISONE
     Indication: Product used for unknown indication
     Dosage: UNK (10 MG PLUS 5 MG, IN THE MORNING AND AFTERNOON)
     Route: 065

REACTIONS (7)
  - Atrial fibrillation [Recovering/Resolving]
  - Electrocardiogram QT prolonged [Not Recovered/Not Resolved]
  - Cardiac failure [Recovering/Resolving]
  - Oedema peripheral [Recovering/Resolving]
  - Injection site erythema [Unknown]
  - Vomiting [Recovered/Resolved]
  - Nausea [Recovered/Resolved]

NARRATIVE: CASE EVENT DATE: 20240805
